FAERS Safety Report 10644202 (Version 1)
Quarter: 2014Q4

REPORT INFORMATION
  Report Type: Report from Study
  Country: ES (occurrence: ES)
  Receive Date: 20141210
  Receipt Date: 20141210
  Transmission Date: 20150529
  Serious: Yes (Death, Other)
  Sender: FDA-Public Use
  Company Number: ES-GILEAD-2014-0125297

PATIENT
  Sex: Male
  Weight: 80 kg

DRUGS (8)
  1. SOFOSBUVIR [Suspect]
     Active Substance: SOFOSBUVIR
     Indication: HEPATITIS C
     Dosage: 1 DF, QD
     Route: 048
     Dates: start: 2014
  2. CLOPIDOGREL [Concomitant]
     Active Substance: CLOPIDOGREL BISULFATE
     Route: 048
  3. EMCONCOR [Concomitant]
     Active Substance: BISOPROLOL FUMARATE
     Route: 048
  4. ATORVASTATIN [Concomitant]
     Active Substance: ATORVASTATIN
     Route: 048
  5. LAMIVUDINE. [Concomitant]
     Active Substance: LAMIVUDINE
     Route: 048
  6. ADIRO [Concomitant]
     Active Substance: ASPIRIN
     Route: 048
  7. ADVAGRAF [Concomitant]
     Active Substance: TACROLIMUS
     Route: 048
  8. PANTOPRAZOLE [Concomitant]
     Active Substance: PANTOPRAZOLE SODIUM
     Route: 048

REACTIONS (2)
  - Gastrointestinal haemorrhage [Fatal]
  - Varices oesophageal [Fatal]
